FAERS Safety Report 21635368 (Version 2)
Quarter: 2023Q1

REPORT INFORMATION
  Report Type: Spontaneous
  Country: US (occurrence: US)
  Receive Date: 20221123
  Receipt Date: 20230112
  Transmission Date: 20230418
  Serious: Yes (Death, Other)
  Sender: FDA-Public Use
  Company Number: US-PFIZER INC-2019440121

PATIENT
  Age: 69 Year
  Sex: Male
  Weight: 95.25 kg

DRUGS (9)
  1. RAPAMUNE [Suspect]
     Active Substance: SIROLIMUS
     Indication: Heart transplant
     Dosage: 1 MG, 1X/DAY
     Route: 048
     Dates: start: 201909
  2. RAPAMUNE [Suspect]
     Active Substance: SIROLIMUS
     Indication: Organ transplant
     Dosage: 2 MG, DAILY
     Route: 048
  3. RAPAMUNE [Suspect]
     Active Substance: SIROLIMUS
     Dosage: 2 DF, DAILY
     Route: 048
  4. RAPAMUNE [Suspect]
     Active Substance: SIROLIMUS
     Dosage: 1 MG, 2X/DAY
     Route: 048
  5. RAPAMUNE [Suspect]
     Active Substance: SIROLIMUS
     Dosage: 1 MG, DAILY
     Route: 048
  6. GLIPIZIDE [Concomitant]
     Active Substance: GLIPIZIDE
     Indication: Diabetes mellitus
     Dosage: UNK
  7. METFORMIN [Concomitant]
     Active Substance: METFORMIN HYDROCHLORIDE
     Indication: Diabetes mellitus
     Dosage: UNK
  8. BRAFTOVI [Concomitant]
     Active Substance: ENCORAFENIB
     Indication: Neoplasm malignant
     Dosage: 75 MG, DAILY (6 CAPSULES)
     Route: 048
     Dates: start: 202102
  9. MEKTOVI [Concomitant]
     Active Substance: BINIMETINIB
     Indication: Neoplasm malignant
     Dosage: 15 MG, DAILY (6 OF THEM A DAY, 3 IN MORNING AND 3 AT NIGHT)
     Route: 048
     Dates: start: 202102

REACTIONS (3)
  - Death [Fatal]
  - Off label use [Unknown]
  - Product prescribing issue [Unknown]

NARRATIVE: CASE EVENT DATE: 20190901
